FAERS Safety Report 10687203 (Version 1)
Quarter: 2014Q4

REPORT INFORMATION
  Report Type: Spontaneous
  Country: US (occurrence: None)
  Receive Date: 20141229
  Receipt Date: 20141229
  Transmission Date: 20150529
  Serious: Yes (Hospitalization)
  Sender: FDA-Public Use
  Company Number: 2681274

PATIENT
  Age: 35 Month
  Sex: Female

DRUGS (2)
  1. (CARBOPLATIN) [Suspect]
     Active Substance: CARBOPLATIN
     Indication: GLIOMA
     Dosage: 1.5 MG/M 2 MILLIGRAM(S) UNKNOWN THERAPY DATE
  2. (VINCRISTINE SULFATE) [Suspect]
     Active Substance: VINCRISTINE SULFATE
     Indication: GLIOMA
     Dosage: 1.5 MG/M2 MILLGRAM(S) / SQ. METER , UNKNOWN THERAPY

REACTIONS (1)
  - Autoimmune haemolytic anaemia [None]
